FAERS Safety Report 5306460-6 (Version None)
Quarter: 2007Q2

REPORT INFORMATION
  Report Type: 
  Country: None (occurrence: None)
  Receive Date: 20070417
  Receipt Date: 20070410
  Transmission Date: 20071010
  Serious: Yes (Hospitalization)
  Sender: FDA-Public Use
  Company Number: URSO-2007-017

PATIENT
  Age: 80 Year
  Sex: Male

DRUGS (17)
  1. URSO 250 [Suspect]
     Indication: BILIARY CIRRHOSIS PRIMARY
     Dosage: 200MG TID PO
     Route: 048
     Dates: start: 20010813, end: 20050609
  2. URSO 250 [Suspect]
     Indication: BILIARY CIRRHOSIS PRIMARY
     Dosage: 200MG TID PO
     Route: 048
     Dates: start: 20050611
  3. NIZATIDINE [Concomitant]
  4. LACTULOSE [Concomitant]
  5. ALDACTONE [Concomitant]
  6. MUCOSOLVAN (AMBROXOL HYDROCHLORIDE) [Concomitant]
  7. TALION (BEPOTASTINE BESYLATE) [Concomitant]
  8. TAURINE (AMINOETHYLSULFONIC ACID) [Concomitant]
  9. VIT K CAP [Concomitant]
  10. DEXTROMETHORPHAN HYDROBROMIDE [Concomitant]
  11. FLAVERIC (BENPROPERINE PHOSPHATE) [Concomitant]
  12. LAC B (BIFIDOBACTERIUM 4) [Concomitant]
  13. ALBUMIN TANNATE [Concomitant]
  14. CLARITHROMYCIN [Concomitant]
  15. ADONA (CARBAZOCHROME SODIUM SULFONATE) [Concomitant]
  16. AMINOLEBAN EN (NUTRITION FOR HEPATIC INSUFFICIENCY 1) [Concomitant]
  17. POSTERISAN (COLIBACILLUS VACCINE) [Concomitant]

REACTIONS (2)
  - ANAEMIA [None]
  - MELAENA [None]
